FAERS Safety Report 25460138 (Version 1)
Quarter: 2025Q2

REPORT INFORMATION
  Report Type: Spontaneous
  Country: AT (occurrence: AT)
  Receive Date: 20250620
  Receipt Date: 20250620
  Transmission Date: 20250716
  Serious: Yes (Other)
  Sender: ABBVIE
  Company Number: AT-ABBVIE-6333152

PATIENT
  Age: 71 Year
  Sex: Female

DRUGS (1)
  1. VENETOCLAX [Suspect]
     Active Substance: VENETOCLAX
     Indication: Acute myeloid leukaemia

REACTIONS (9)
  - Cardiac failure [Unknown]
  - Influenza [Unknown]
  - COVID-19 [Unknown]
  - Bone marrow failure [Unknown]
  - Neutropenia [Unknown]
  - Thrombocytopenia [Recovering/Resolving]
  - Tooth extraction [Unknown]
  - Cytopenia [Unknown]
  - Off label use [Unknown]
